FAERS Safety Report 8825769 (Version 2)
Quarter: 2012Q4

REPORT INFORMATION
  Report Type: 
  Country: FR (occurrence: FR)
  Receive Date: 20121004
  Receipt Date: 20121014
  Transmission Date: 20130627
  Serious: Yes (Other)
  Sender: FDA-Public Use
  Company Number: FR-TEVA-362283ISR

PATIENT
  Age: 57 Year
  Sex: Male

DRUGS (14)
  1. VINCRISTINE [Suspect]
     Indication: LYMPHOMA
  2. PREDNISONE [Suspect]
     Indication: LYMPHOMA
  3. FLUDARABINE [Suspect]
     Indication: LYMPHOMA
  4. CYCLOPHOSPHAMID [Suspect]
     Indication: LYMPHOMA
  5. CYCLOSPORINE [Suspect]
     Indication: LYMPHOMA
  6. CHLORAMBUCIL [Suspect]
     Indication: LYMPHOMA
  7. ALEMTUZUMAB [Suspect]
     Indication: LYMPHOMA
  8. RITUXIMAB [Suspect]
     Indication: LYMPHOMA
  9. DEXAMETHASONE [Suspect]
     Indication: LYMPHOMA
  10. CYTARABINE [Suspect]
     Indication: LYMPHOMA
  11. ADRIAMYCIN [Suspect]
  12. BLEOMYCIN [Concomitant]
     Indication: HODGKIN^S DISEASE
  13. VINBLASTINE [Concomitant]
     Indication: HODGKIN^S DISEASE
  14. DACARBAZINE [Concomitant]
     Indication: HODGKIN^S DISEASE

REACTIONS (1)
  - Hodgkin^s disease [Recovered/Resolved]
